FAERS Safety Report 7546592-5 (Version None)
Quarter: 2011Q2

REPORT INFORMATION
  Report Type: 
  Country: None (occurrence: None)
  Receive Date: 20110614
  Receipt Date: 20110606
  Transmission Date: 20111010
  Serious: Yes (Other)
  Sender: FDA-Public Use
  Company Number: GB-ELI_LILLY_AND_COMPANY-GB201106001304

PATIENT
  Age: 47 Year
  Sex: Female
  Weight: 88.1 kg

DRUGS (4)
  1. SIMVASTATIN [Concomitant]
     Dosage: 40 MG, QD
  2. BYETTA [Suspect]
     Indication: DIABETES MELLITUS
     Dosage: 5 UG, UNKNOWN
     Route: 058
     Dates: end: 20110506
  3. RAMIPRIL [Concomitant]
     Dosage: 5 MG, QD
  4. GLICLAZIDE [Concomitant]
     Indication: DIABETES MELLITUS
     Dosage: 80 MG, QD

REACTIONS (2)
  - MALAISE [None]
  - ABDOMINAL PAIN [None]
